FAERS Safety Report 25934390 (Version 2)
Quarter: 2025Q4

REPORT INFORMATION
  Report Type: Report from Study
  Country: US (occurrence: US)
  Receive Date: 20251017
  Receipt Date: 20251201
  Transmission Date: 20260118
  Serious: No
  Sender: ACADIA PHARMACEUTICALS
  Company Number: US-ACADIA PHARMACEUTICALS INC.-ACA-2025-PIM-011298

PATIENT
  Age: 78 Year
  Sex: Female

DRUGS (18)
  1. NUPLAZID [Suspect]
     Active Substance: PIMAVANSERIN TARTRATE
     Indication: Parkinson^s disease psychosis
     Dosage: 34 MILLIGRAM, QD
     Route: 048
     Dates: start: 20250919
  2. ISOSORBIDE MONONITRATE [Concomitant]
     Active Substance: ISOSORBIDE MONONITRATE
     Dosage: ER
  3. DULOXETINE [Concomitant]
     Active Substance: DULOXETINE
  4. CLOPIDOGREL [Concomitant]
     Active Substance: CLOPIDOGREL BISULFATE
  5. HYDROCHLOROTHIAZIDE [Concomitant]
     Active Substance: HYDROCHLOROTHIAZIDE
  6. PANTOPRAZOLE [Concomitant]
     Active Substance: PANTOPRAZOLE
  7. EZETIMIBE [Concomitant]
     Active Substance: EZETIMIBE
  8. METOPROLOL [Concomitant]
     Active Substance: METOPROLOL
     Dosage: ER
  9. LEVOTHYROXINE [Concomitant]
     Active Substance: LEVOTHYROXINE
  10. RANEXA [Concomitant]
     Active Substance: RANOLAZINE
  11. OXYCODONE [Concomitant]
     Active Substance: OXYCODONE
  12. GABAPENTIN [Concomitant]
     Active Substance: GABAPENTIN
  13. BUPROPION HYDROCHLORIDE [Concomitant]
     Active Substance: BUPROPION HYDROCHLORIDE
     Dosage: ER
  14. DICLOFENAC [Concomitant]
     Active Substance: DICLOFENAC
  15. TYLENOL [Concomitant]
     Active Substance: ACETAMINOPHEN
     Dosage: RR
  16. DOCUSATE SODIUM [Concomitant]
     Active Substance: DOCUSATE SODIUM
  17. NITROGLYCERIN [Concomitant]
     Active Substance: NITROGLYCERIN
  18. RIVASTIGMINE [Concomitant]
     Active Substance: RIVASTIGMINE
     Dosage: 9.5 MG/24 HR DIS TABLET

REACTIONS (5)
  - Paranoia [Recovered/Resolved]
  - Anger [Recovered/Resolved]
  - Persecutory delusion [Recovered/Resolved]
  - Head injury [Recovered/Resolved]
  - Fall [Recovered/Resolved]

NARRATIVE: CASE EVENT DATE: 20251120
